FAERS Safety Report 19749122 (Version 1)
Quarter: 2021Q3

REPORT INFORMATION
  Report Type: Spontaneous
  Country: US (occurrence: US)
  Receive Date: 20210825
  Receipt Date: 20210825
  Transmission Date: 20211014
  Serious: Yes (Death)
  Sender: FDA-Public Use
  Company Number: None

PATIENT
  Sex: Female
  Weight: 102.15 kg

DRUGS (15)
  1. HYDROCODONE?ACETAMINOPHEN [Concomitant]
     Active Substance: ACETAMINOPHEN\HYDROCODONE
  2. LOSARTAN. [Concomitant]
     Active Substance: LOSARTAN
  3. SERTALINE [Concomitant]
     Active Substance: SERTRALINE HYDROCHLORIDE
  4. ZOLEDRONIC ACID [Suspect]
     Active Substance: ZOLEDRONIC ACID
     Indication: PLASMA CELL MYELOMA
     Dosage: ?          OTHER FREQUENCY:EVERY 3 MONTHS;?
     Route: 042
  5. ASPIRIN. [Concomitant]
     Active Substance: ASPIRIN
  6. SEVELAMER [Concomitant]
     Active Substance: SEVELAMER
  7. DEXAMETHASONE. [Concomitant]
     Active Substance: DEXAMETHASONE
  8. ALLOPURINOL. [Concomitant]
     Active Substance: ALLOPURINOL
  9. ACYCLOVIR. [Concomitant]
     Active Substance: ACYCLOVIR
  10. REVLIMID [Concomitant]
     Active Substance: LENALIDOMIDE
  11. NAPROXEN. [Concomitant]
     Active Substance: NAPROXEN
  12. VELCADE [Concomitant]
     Active Substance: BORTEZOMIB
  13. GABAPENTIN. [Concomitant]
     Active Substance: GABAPENTIN
  14. BACTRIM [Concomitant]
     Active Substance: SULFAMETHOXAZOLE\TRIMETHOPRIM
  15. ONDANSETRON [Concomitant]
     Active Substance: ONDANSETRON

REACTIONS (1)
  - Death [None]
